FAERS Safety Report 23333170 (Version 1)
Quarter: 2023Q4

REPORT INFORMATION
  Report Type: Spontaneous
  Country: US (occurrence: US)
  Receive Date: 20231222
  Receipt Date: 20231222
  Transmission Date: 20240109
  Serious: Yes (Death, Hospitalization)
  Sender: FDA-Public Use
  Company Number: US-Vifor (International) Inc.-VIT-2023-10283

PATIENT
  Age: 67 Year
  Sex: Male
  Weight: 119.1 kg

DRUGS (1)
  1. MIRCERA [Suspect]
     Active Substance: METHOXY POLYETHYLENE GLYCOL-EPOETIN BETA
     Indication: Nephrogenic anaemia
     Route: 040
     Dates: start: 20231208, end: 20231208

REACTIONS (2)
  - Drug hypersensitivity [Fatal]
  - Unresponsive to stimuli [Fatal]

NARRATIVE: CASE EVENT DATE: 20231208
